FAERS Safety Report 18198542 (Version 2)
Quarter: 2020Q4

REPORT INFORMATION
  Report Type: Spontaneous
  Country: US (occurrence: US)
  Receive Date: 20200826
  Receipt Date: 20201030
  Transmission Date: 20210113
  Serious: Yes (Other)
  Sender: FDA-Public Use
  Company Number: US-BAYER-2020-176420

PATIENT
  Age: 32 Year
  Sex: Female

DRUGS (1)
  1. SKYLA [Suspect]
     Active Substance: LEVONORGESTREL
     Indication: INTRAUTERINE CONTRACEPTION
     Dosage: 14?G PER DAY, CONTINUOUSLY
     Route: 015
     Dates: start: 20200309

REACTIONS (2)
  - Genital haemorrhage [None]
  - Depressed mood [None]

NARRATIVE: CASE EVENT DATE: 20200309
